FAERS Safety Report 20500039 (Version 1)
Quarter: 2022Q1

REPORT INFORMATION
  Report Type: Spontaneous
  Country: US (occurrence: US)
  Receive Date: 20220222
  Receipt Date: 20220222
  Transmission Date: 20220423
  Serious: No
  Sender: FDA-Public Use
  Company Number: US-UCBSA-2021051856

PATIENT
  Age: 77 Year
  Sex: Male

DRUGS (6)
  1. LEVETIRACETAM [Suspect]
     Active Substance: LEVETIRACETAM
     Indication: Aphasia
     Dosage: UNKNOWN DOSE
  2. LEVETIRACETAM [Suspect]
     Active Substance: LEVETIRACETAM
     Indication: Off label use
  3. METHOTREXATE [Concomitant]
     Active Substance: METHOTREXATE
     Indication: Arthropathy
     Dosage: UNKNOWN DOSE
  4. PREDNISONE [Concomitant]
     Active Substance: PREDNISONE
     Indication: Granulomatosis with polyangiitis
     Dosage: UNKNOWN DOSE
  5. PREDNISONE [Concomitant]
     Active Substance: PREDNISONE
     Indication: Arthropathy
     Dosage: 40 MILLIGRAM, DAILY
     Route: 048
  6. RITUXIMAB [Concomitant]
     Active Substance: RITUXIMAB
     Indication: Granulomatosis with polyangiitis
     Dosage: UNKNOWN DOSE

REACTIONS (1)
  - No adverse event [Unknown]
